FAERS Safety Report 8339573-5 (Version None)
Quarter: 2012Q2

REPORT INFORMATION
  Report Type: 
  Country: None (occurrence: None)
  Receive Date: 20120507
  Receipt Date: 20120502
  Transmission Date: 20120825
  Serious: Yes (Other)
  Sender: FDA-Public Use
  Company Number: PHHY2012AT037732

PATIENT
  Age: 61 Year
  Sex: Female

DRUGS (3)
  1. AFINITOR [Suspect]
     Indication: BREAST CANCER
     Dosage: 10 MG, DAILY
     Route: 048
     Dates: start: 20120101
  2. AFINITOR [Suspect]
     Dosage: 5 MG, PER DAY
     Route: 048
  3. AFINITOR [Suspect]
     Dosage: 5 MG AND 10 MG DAILY ALTERNATIVELY
     Route: 048

REACTIONS (2)
  - STOMATITIS [None]
  - HAEMATOTOXICITY [None]
